FAERS Safety Report 8106595-9 (Version None)
Quarter: 2012Q1

REPORT INFORMATION
  Report Type: 
  Country: None (occurrence: None)
  Receive Date: 20120202
  Receipt Date: 20120125
  Transmission Date: 20120608
  Serious: Yes (Other)
  Sender: FDA-Public Use
  Company Number: US-BAYER-2011-094109

PATIENT
  Age: 47 Year
  Sex: Female
  Weight: 90.703 kg

DRUGS (6)
  1. YASMIN [Suspect]
  2. YASMIN [Suspect]
     Indication: CONTRACEPTION
     Dosage: UNK
     Dates: start: 20090424, end: 20090901
  3. CEPHALEXIN [Concomitant]
     Indication: INFECTION
     Dosage: 500 MG, QD
     Route: 048
     Dates: start: 20090902
  4. DOXYCYCLINE [Concomitant]
     Indication: INFECTION
     Dosage: 100 MG, BID
     Route: 048
     Dates: start: 20090904
  5. OXYCODONE HCL [Concomitant]
     Indication: PAIN
     Dosage: 5-325MG, PRN
     Route: 048
  6. TRAMADOL HCL [Concomitant]
     Indication: PAIN
     Dosage: 50 MG, PRN
     Route: 048
     Dates: start: 20090904

REACTIONS (3)
  - DEEP VEIN THROMBOSIS [None]
  - VENOUS THROMBOSIS [None]
  - INJURY [None]
